FAERS Safety Report 11273682 (Version 1)
Quarter: 2015Q3

REPORT INFORMATION
  Report Type: Spontaneous
  Country: US (occurrence: US)
  Receive Date: 20150715
  Receipt Date: 20150715
  Transmission Date: 20151125
  Serious: No
  Sender: FDA-Public Use
  Company Number: US-ENDO PHARMACEUTICALS INC.-201501041

PATIENT
  Age: 67 Year
  Sex: Male
  Weight: 113.5 kg

DRUGS (4)
  1. EDEX [Suspect]
     Active Substance: ALPROSTADIL
     Dosage: EVERY 2 WEEKS PRN
     Route: 017
     Dates: start: 2014
  2. LIPITOR [Concomitant]
     Active Substance: ATORVASTATIN CALCIUM
  3. SINGULAIR [Concomitant]
     Active Substance: MONTELUKAST SODIUM
  4. PROZAC [Concomitant]
     Active Substance: FLUOXETINE HYDROCHLORIDE

REACTIONS (1)
  - Drug ineffective [Not Recovered/Not Resolved]

NARRATIVE: CASE EVENT DATE: 2014
